FAERS Safety Report 9854583 (Version 2)
Quarter: 2014Q1

REPORT INFORMATION
  Report Type: Spontaneous
  Country: US (occurrence: US)
  Receive Date: 20140130
  Receipt Date: 20140310
  Transmission Date: 20141002
  Serious: No
  Sender: FDA-Public Use
  Company Number: US-BIOGENIDEC-2014BI007734

PATIENT
  Age: 40 Year
  Sex: Female

DRUGS (2)
  1. TECFIDERA [Suspect]
     Indication: MULTIPLE SCLEROSIS
     Route: 048
     Dates: start: 20131211, end: 20131217
  2. TECFIDERA [Suspect]
     Indication: MULTIPLE SCLEROSIS
     Route: 048
     Dates: start: 20131218, end: 20131223

REACTIONS (8)
  - Hypersensitivity [Unknown]
  - White blood cell count increased [Unknown]
  - Blood potassium decreased [Unknown]
  - Blood pressure increased [Unknown]
  - Palpitations [Unknown]
  - Dehydration [Unknown]
  - Laboratory test abnormal [Unknown]
  - Flushing [Unknown]
